FAERS Safety Report 25427238 (Version 1)
Quarter: 2025Q2

REPORT INFORMATION
  Report Type: Spontaneous
  Country: US (occurrence: US)
  Receive Date: 20250612
  Receipt Date: 20250612
  Transmission Date: 20250717
  Serious: No
  Sender: ROCHE
  Company Number: US-ROCHE-10000308553

PATIENT
  Sex: Female

DRUGS (10)
  1. ACTEMRA ACTPEN [Suspect]
     Active Substance: TOCILIZUMAB
     Indication: Rheumatoid arthritis
     Dosage: STRENGTH: 162MG/0.9ML
     Route: 058
  2. AMLODIPINE B TAB 5MG [Concomitant]
  3. CLOPIDOGREL TAB 75MG [Concomitant]
  4. LIPITOR TAB 80MG [Concomitant]
  5. METHOTREXATE [Concomitant]
     Active Substance: METHOTREXATE
  6. TRAMADOL HCL TAB SOMG [Concomitant]
  7. AMOXICILLIN CAP 500MG [Concomitant]
  8. METOPROLOL T TAB 50MG [Concomitant]
  9. TRELEGY ELLI AEP 100-62.5 [Concomitant]
  10. XeLJANZ XR TB2 11MG [Concomitant]

REACTIONS (3)
  - Nausea [Unknown]
  - Vomiting [Unknown]
  - Headache [Unknown]
